FAERS Safety Report 6655915-0 (Version None)
Quarter: 2010Q1

REPORT INFORMATION
  Report Type: 
  Country: None (occurrence: None)
  Receive Date: 20100329
  Receipt Date: 20100315
  Transmission Date: 20100710
  Serious: Yes (Hospitalization)
  Sender: FDA-Public Use
  Company Number: PHHY2010US16172

PATIENT
  Sex: Female

DRUGS (13)
  1. EXELON [Suspect]
     Dosage: 4.6 MG, QD
     Dates: start: 20100227, end: 20100308
  2. ASPIRIN [Concomitant]
  3. LEXAPRO [Concomitant]
  4. RYTHMOL [Concomitant]
  5. NORVASC [Concomitant]
  6. COLACE [Concomitant]
  7. COUMADIN [Concomitant]
  8. LISINOPRIL [Concomitant]
  9. NICOTINE [Concomitant]
  10. LIPITOR [Concomitant]
  11. MULTI-VITAMINS [Concomitant]
  12. BENADRYL [Concomitant]
  13. ZITHROMAX [Concomitant]

REACTIONS (3)
  - BRONCHITIS [None]
  - PYREXIA [None]
  - RASH MACULAR [None]
